FAERS Safety Report 9760191 (Version 1)
Quarter: 2013Q4

REPORT INFORMATION
  Report Type: Spontaneous
  Country: US (occurrence: US)
  Receive Date: 20131216
  Receipt Date: 20131216
  Transmission Date: 20140711
  Serious: No
  Sender: FDA-Public Use
  Company Number: US-009507513-1312USA006397

PATIENT
  Sex: Female

DRUGS (1)
  1. SINGULAIR [Suspect]
     Dosage: 1 DF, QD
     Route: 048
     Dates: start: 20131211

REACTIONS (3)
  - Drug dose omission [Unknown]
  - Refusal of treatment by patient [Unknown]
  - No adverse event [Unknown]
